FAERS Safety Report 17921577 (Version 3)
Quarter: 2020Q3

REPORT INFORMATION
  Report Type: Spontaneous
  Country: US (occurrence: US)
  Receive Date: 20200622
  Receipt Date: 20200814
  Transmission Date: 20201103
  Serious: No
  Sender: FDA-Public Use
  Company Number: US-LUPIN PHARMACEUTICALS INC.-2020-02901

PATIENT
  Age: 10 Month
  Sex: Male
  Weight: 7.48 kg

DRUGS (2)
  1. FAMOTIDINE FOR ORAL SUSPENSION USP 40 MG/5ML [Suspect]
     Active Substance: FAMOTIDINE
     Dosage: HALF TABLESPOON, BID
     Route: 048
  2. FAMOTIDINE FOR ORAL SUSPENSION USP 40 MG/5ML [Suspect]
     Active Substance: FAMOTIDINE
     Indication: GASTROOESOPHAGEAL REFLUX DISEASE
     Dosage: HALF TABLESPOON, BID
     Route: 048
     Dates: start: 20200527, end: 20200608

REACTIONS (3)
  - Poor quality product administered [Unknown]
  - Product dose omission issue [Unknown]
  - Product colour issue [Unknown]

NARRATIVE: CASE EVENT DATE: 20200527
